FAERS Safety Report 17809124 (Version 6)
Quarter: 2020Q3

REPORT INFORMATION
  Report Type: Report from Study
  Country: US (occurrence: US)
  Receive Date: 20200520
  Receipt Date: 20200821
  Transmission Date: 20201102
  Serious: Yes (Hospitalization, Other)
  Sender: FDA-Public Use
  Company Number: US-GILEAD-2020-0467957

PATIENT
  Age: 56 Year
  Sex: Female

DRUGS (40)
  1. AZTREONAM LYSINE [Suspect]
     Active Substance: AZTREONAM LYSINE
     Indication: CYSTIC FIBROSIS LUNG
     Dosage: 75 MG, TID, 28 DAYS ON 28 DAYS OFF
     Route: 055
     Dates: start: 20131227
  2. LEVALBUTEROL TARTRATE HFA [Concomitant]
     Active Substance: LEVALBUTEROL TARTRATE
  3. MELATONIN [Concomitant]
     Active Substance: MELATONIN
  4. MUPIROCIN. [Concomitant]
     Active Substance: MUPIROCIN
  5. LEVOFLOXACIN. [Concomitant]
     Active Substance: LEVOFLOXACIN
  6. ZOLOFT [Concomitant]
     Active Substance: SERTRALINE HYDROCHLORIDE
  7. METAXALONE. [Concomitant]
     Active Substance: METAXALONE
  8. ENSURE [Concomitant]
     Active Substance: AMINO ACIDS\DEXTROSE\ELECTROLYTES NOS\SOYBEAN OIL\VITAMINS
  9. ADVAIR HFA [Concomitant]
     Active Substance: FLUTICASONE PROPIONATE\SALMETEROL XINAFOATE
  10. FLUTICASONE. [Concomitant]
     Active Substance: FLUTICASONE
  11. TRAMADOL HYDROCHLORIDE. [Concomitant]
     Active Substance: TRAMADOL HYDROCHLORIDE
  12. KALYDECO [Concomitant]
     Active Substance: IVACAFTOR
  13. MUCINEX [Concomitant]
     Active Substance: GUAIFENESIN
  14. LEVALBUTEROL HCL [Concomitant]
     Active Substance: LEVALBUTEROL HYDROCHLORIDE
  15. PULMOZYME [Concomitant]
     Active Substance: DORNASE ALFA
  16. LORATADINE. [Concomitant]
     Active Substance: LORATADINE
  17. AQUADEKS [Concomitant]
     Active Substance: MINERALS\VITAMINS
  18. SERTRALINE [Concomitant]
     Active Substance: SERTRALINE HYDROCHLORIDE
  19. SALINE [SODIUM CHLORIDE] [Concomitant]
     Active Substance: SODIUM CHLORIDE
  20. PANTOPRAZOLE [Concomitant]
     Active Substance: PANTOPRAZOLE
  21. URSODIOL. [Concomitant]
     Active Substance: URSODIOL
  22. CALCIUM/VITAMIN D3 [Concomitant]
  23. N?ACETYL?L?CYSTEINE [Concomitant]
     Active Substance: ACETYLCYSTEINE
  24. CALCIUM CITRATE + D3 [Concomitant]
  25. MIRALAX [Concomitant]
     Active Substance: POLYETHYLENE GLYCOL 3350
  26. TOPIRAMATE. [Concomitant]
     Active Substance: TOPIRAMATE
  27. FAMOTIDINE. [Concomitant]
     Active Substance: FAMOTIDINE
  28. BETHKIS [Concomitant]
     Active Substance: TOBRAMYCIN
  29. ALPRAZOLAM. [Concomitant]
     Active Substance: ALPRAZOLAM
  30. VITAMIN D3 [Concomitant]
     Active Substance: CHOLECALCIFEROL
  31. COLISTIMETHATE [COLISTIMETHATE SODIUM] [Concomitant]
     Active Substance: COLISTIMETHATE SODIUM
  32. TRAZODONE [Concomitant]
     Active Substance: TRAZODONE HYDROCHLORIDE
  33. PANCREAZE [Concomitant]
     Active Substance: PANCRELIPASE AMYLASE\PANCRELIPASE LIPASE\PANCRELIPASE PROTEASE
  34. OLOPATADINE. [Concomitant]
     Active Substance: OLOPATADINE
  35. NYSTATIN. [Concomitant]
     Active Substance: NYSTATIN
  36. CLONAZEPAM. [Concomitant]
     Active Substance: CLONAZEPAM
  37. AZITHROMYCIN ANHYDROUS. [Concomitant]
     Active Substance: AZITHROMYCIN ANHYDROUS
  38. FLUOROMETHOLON [Concomitant]
     Active Substance: FLUOROMETHOLONE
  39. TOPAMAX [Concomitant]
     Active Substance: TOPIRAMATE
  40. CYANOCOBALAMIN. [Concomitant]
     Active Substance: CYANOCOBALAMIN

REACTIONS (5)
  - Pneumonia [Not Recovered/Not Resolved]
  - Bronchopulmonary aspergillosis [Not Recovered/Not Resolved]
  - Cystic fibrosis [Not Recovered/Not Resolved]
  - Thermal burn [Not Recovered/Not Resolved]
  - Gastrooesophageal reflux disease [Unknown]

NARRATIVE: CASE EVENT DATE: 202005
